FAERS Safety Report 8643907 (Version 2)
Quarter: 2013Q4

REPORT INFORMATION
  Report Type: Report from Study
  Country: JP (occurrence: JP)
  Receive Date: 20120629
  Receipt Date: 20131129
  Transmission Date: 20140711
  Serious: Yes (Hospitalization, Other)
  Sender: FDA-Public Use
  Company Number: JP-BRISTOL-MYERS SQUIBB COMPANY-15853336

PATIENT
  Age: 26 Year
  Sex: Female
  Weight: 41 kg

DRUGS (12)
  1. SPRYCEL [Suspect]
     Indication: CHRONIC MYELOID LEUKAEMIA
     Dosage: 140MG,2PER1D
     Route: 048
     Dates: start: 20100301, end: 20100731
  2. ENDOXAN [Suspect]
     Indication: CHRONIC MYELOID LEUKAEMIA
     Route: 042
     Dates: start: 20100226, end: 20100302
  3. ADRIACIN [Suspect]
     Indication: CHRONIC MYELOID LEUKAEMIA
     Route: 042
     Dates: start: 20100226, end: 20100302
  4. ONCOVIN [Suspect]
     Indication: CHRONIC MYELOID LEUKAEMIA
     Route: 042
     Dates: start: 20100226, end: 20100302
  5. METHOTREXATE [Suspect]
  6. DECADRON [Concomitant]
     Indication: CHRONIC MYELOID LEUKAEMIA
     Route: 042
     Dates: start: 20100226, end: 20100302
  7. NEO-MINOPHAGEN C [Concomitant]
     Indication: LIVER DISORDER
     Route: 042
     Dates: start: 20100222, end: 20100303
  8. LASIX [Concomitant]
     Indication: OEDEMA
     Dosage: 01MAR-01MAR10,10MG?07AUG-23AUG10,20MG(ORAL)
     Route: 042
     Dates: start: 20100301, end: 20100823
  9. PRIMPERAN [Concomitant]
     Indication: NAUSEA
     Route: 042
     Dates: start: 20100301, end: 20100301
  10. DIFLUCAN [Concomitant]
     Indication: IMMUNOSUPPRESSION
     Route: 048
     Dates: start: 20100227, end: 20100306
  11. ZYLORIC [Concomitant]
     Indication: CHRONIC MYELOID LEUKAEMIA
     Route: 048
     Dates: end: 20100303
  12. CRAVIT [Concomitant]
     Indication: IMMUNOSUPPRESSION
     Route: 048
     Dates: start: 20100224, end: 20100308

REACTIONS (6)
  - Enterocolitis haemorrhagic [Recovered/Resolved]
  - Pleurisy [Recovering/Resolving]
  - Anaemia [Recovered/Resolved]
  - Neutrophil count decreased [Recovered/Resolved]
  - Platelet count decreased [Recovering/Resolving]
  - Cytomegalovirus enterocolitis [Recovered/Resolved]
